FAERS Safety Report 4325426-6 (Version None)
Quarter: 2004Q1

REPORT INFORMATION
  Report Type: 
  Country: None (occurrence: None)
  Receive Date: 20040325
  Receipt Date: 20040325
  Transmission Date: 20041129
  Serious: No
  Sender: FDA-Public Use
  Company Number: None

PATIENT
  Age: 46 Year
  Sex: Female
  Weight: 73.4827 kg

DRUGS (2)
  1. ZIAC [Suspect]
     Indication: HYPERTENSION
     Dosage: 5/6.25 -10 MG  1 QD
  2. TRICOR [Suspect]
     Indication: HYPERLIPIDAEMIA
     Dosage: 160 MG QD

REACTIONS (3)
  - DRUG EFFECT DECREASED [None]
  - HEADACHE [None]
  - PHARMACEUTICAL PRODUCT COMPLAINT [None]
